FAERS Safety Report 21541191 (Version 1)
Quarter: 2022Q4

REPORT INFORMATION
  Report Type: Spontaneous
  Country: US (occurrence: US)
  Receive Date: 20221102
  Receipt Date: 20221102
  Transmission Date: 20230113
  Serious: Yes (Hospitalization)
  Sender: FDA-Public Use
  Company Number: US-VERTEX PHARMACEUTICALS-2022-014773

PATIENT
  Sex: Female

DRUGS (6)
  1. TRIKAFTA [Suspect]
     Active Substance: ELEXACAFTOR\IVACAFTOR\TEZACAFTOR
     Indication: Cystic fibrosis
     Dosage: 2 TABS IN AM; 1 TAB IN PM
     Route: 048
     Dates: start: 20200106
  2. ATIVAN [Concomitant]
     Active Substance: LORAZEPAM
  3. CAYSTON [Concomitant]
     Active Substance: AZTREONAM
     Dosage: SOL/ DILUENT 84 VIAL
  4. VITAMIN D [Concomitant]
     Active Substance: VITAMIN D NOS
     Dosage: SOFTGEL CAPSULES
  5. XOPENEX [Concomitant]
     Active Substance: LEVALBUTEROL HYDROCHLORIDE
     Dosage: 0.63 MG/ 3ML, 24X3ML
     Route: 055
  6. ACETYLCYSTEINE [Concomitant]
     Active Substance: ACETYLCYSTEINE

REACTIONS (3)
  - Diarrhoea [Not Recovered/Not Resolved]
  - Rhinovirus infection [Not Recovered/Not Resolved]
  - Infective pulmonary exacerbation of cystic fibrosis [Not Recovered/Not Resolved]

NARRATIVE: CASE EVENT DATE: 20220101
